FAERS Safety Report 9997867 (Version 1)
Quarter: 2014Q1

REPORT INFORMATION
  Report Type: Spontaneous
  Country: HR (occurrence: HR)
  Receive Date: 20140311
  Receipt Date: 20140311
  Transmission Date: 20141002
  Serious: Yes (Other)
  Sender: FDA-Public Use
  Company Number: HR-PFIZER INC-2014066170

PATIENT
  Age: 60 Year
  Sex: Male
  Weight: 80 kg

DRUGS (5)
  1. SORTIS [Suspect]
     Indication: HYPERCHOLESTEROLAEMIA
     Dosage: UNK
     Route: 065
  2. TRITACE [Interacting]
     Indication: HYPERTENSION
     Dosage: 5 MG, 1X/DAY
     Route: 065
     Dates: start: 20120105
  3. ALOPURINOL ^BELUPO^ [Interacting]
     Indication: GOUT
     Dosage: 100 MG, DAILY
     Route: 065
     Dates: start: 200804
  4. JANUMET [Concomitant]
     Indication: DIABETES MELLITUS
     Dosage: 2 DF, 1X/DAY
  5. NOVONORM [Concomitant]
     Indication: DIABETES MELLITUS
     Dosage: 2 MG, 3X/DAY

REACTIONS (3)
  - Drug interaction [Unknown]
  - Myalgia [Unknown]
  - Muscle spasms [Unknown]
